FAERS Safety Report 11695562 (Version 1)
Quarter: 2015Q4

REPORT INFORMATION
  Report Type: Spontaneous
  Country: US (occurrence: US)
  Receive Date: 20151104
  Receipt Date: 20151104
  Transmission Date: 20160304
  Serious: No
  Sender: FDA-Public Use
  Company Number: PHEH2015US021798

PATIENT
  Sex: Female

DRUGS (1)
  1. TRILEPTAL [Suspect]
     Active Substance: OXCARBAZEPINE
     Indication: BIPOLAR DISORDER
     Dosage: UNK
     Route: 065

REACTIONS (4)
  - Insomnia [Unknown]
  - Dizziness [Unknown]
  - Off label use [Unknown]
  - Drug hypersensitivity [Unknown]
